FAERS Safety Report 8572452-7 (Version None)
Quarter: 2012Q2

REPORT INFORMATION
  Report Type: 
  Country: None (occurrence: None)
  Receive Date: 20120419
  Receipt Date: 20120419
  Transmission Date: 20120825
  Serious: Yes (Hospitalization)
  Sender: FDA-Public Use
  Company Number: SPV1-2011-00201

PATIENT
  Age: 29 Year
  Sex: Male
  Weight: 83.4 kg

DRUGS (6)
  1. LIALDA [Suspect]
     Indication: COLITIS ULCERATIVE
     Dosage: ORAL
     Route: 048
     Dates: start: 20101229, end: 20110108
  2. IRON (IRON) [Concomitant]
  3. MULTIVITAMINS /0097801/ (ASCORBIC ACID, CALCIUM PANTOTHENATE, ERGOCALC [Concomitant]
  4. FISH OIL (FISH OIL) [Concomitant]
  5. FOLIC ACID [Concomitant]
  6. PREDNISONE TAB [Concomitant]

REACTIONS (1)
  - PANCREATITIS [None]
